FAERS Safety Report 8897854 (Version 1)
Quarter: 2012Q4

REPORT INFORMATION
  Report Type: 
  Country: US (occurrence: US)
  Receive Date: 20121108
  Receipt Date: 20121108
  Transmission Date: 20130627
  Serious: No
  Sender: FDA-Public Use
  Company Number: US-AMGEN-USASP2012030810

PATIENT
  Sex: Male
  Weight: 98 kg

DRUGS (5)
  1. ENBREL [Suspect]
     Indication: PRODUCT USED FOR UNKNOWN INDICATION
     Dosage: 50 mg, 2 times/wk
     Route: 058
  2. ASPIRIN [Concomitant]
     Dosage: 81 mg, UNK
  3. DESONIDE [Suspect]
     Dosage: .05 %, UNK
  4. LASIX                              /00032601/ [Concomitant]
     Dosage: 80 mg, UNK
  5. POTASSIUM [Concomitant]
     Dosage: 75 mg, UNK

REACTIONS (2)
  - Dry skin [Unknown]
  - Skin exfoliation [Unknown]
